FAERS Safety Report 13621548 (Version 1)
Quarter: 2017Q2

REPORT INFORMATION
  Report Type: Spontaneous
  Country: ES (occurrence: ES)
  Receive Date: 20170607
  Receipt Date: 20170607
  Transmission Date: 20170830
  Serious: Yes (Hospitalization)
  Sender: FDA-Public Use
  Company Number: ES-LUNDBECK-DKLU2032384

PATIENT
  Sex: Male

DRUGS (2)
  1. SABRILEX [Suspect]
     Active Substance: VIGABATRIN
     Indication: INFANTILE SPASMS
     Route: 065
  2. DEPAKINE [Concomitant]
     Active Substance: VALPROATE SODIUM
     Indication: PRODUCT USED FOR UNKNOWN INDICATION
     Route: 065

REACTIONS (6)
  - Failure to thrive [Unknown]
  - Regurgitation [Unknown]
  - Seizure [Unknown]
  - Insomnia [Unknown]
  - Drug ineffective [Unknown]
  - Blindness [Unknown]
